FAERS Safety Report 17059046 (Version 1)
Quarter: 2019Q4

REPORT INFORMATION
  Report Type: Spontaneous
  Country: NO (occurrence: NO)
  Receive Date: 20191121
  Receipt Date: 20191121
  Transmission Date: 20200122
  Serious: Yes (Other)
  Sender: FDA-Public Use
  Company Number: NO-MYLANLABS-2019M1110938

PATIENT
  Age: 67 Year
  Sex: Male

DRUGS (5)
  1. ADRIAMYCIN [Suspect]
     Active Substance: DOXORUBICIN HYDROCHLORIDE
     Indication: TESTICULAR GERM CELL TUMOUR
     Dosage: UNK UNK, CYCLE
  2. CISPLATIN. [Suspect]
     Active Substance: CISPLATIN
     Indication: TESTICULAR GERM CELL TUMOUR
     Dosage: UNK, CYCLE
  3. CYCLOPHOSPHAMIDE. [Suspect]
     Active Substance: CYCLOPHOSPHAMIDE
     Indication: TESTICULAR GERM CELL TUMOUR
     Dosage: UNK UNK, CYCLE
  4. CCNU [Suspect]
     Active Substance: LOMUSTINE
     Indication: TESTICULAR GERM CELL TUMOUR
     Dosage: UNK UNK, CYCLE
  5. VINBLASTIN [Suspect]
     Active Substance: VINBLASTINE
     Indication: TESTICULAR GERM CELL TUMOUR
     Dosage: UNK, CYCLE

REACTIONS (2)
  - Polyneuropathy [Unknown]
  - Cardiac failure [Unknown]
